FAERS Safety Report 7964224-9 (Version None)
Quarter: 2011Q4

REPORT INFORMATION
  Report Type: 
  Country: None (occurrence: None)
  Receive Date: 20111208
  Receipt Date: 20111206
  Transmission Date: 20120403
  Serious: Yes (Life-Threatening, Hospitalization, Disabling)
  Sender: FDA-Public Use
  Company Number: IL-B.I. PHARMACEUTICALS,INC./RIDGEFIELD-2011-AP-00663RI

PATIENT
  Age: 80 Year
  Sex: Female
  Weight: 60 kg

DRUGS (8)
  1. LIPITOR [Concomitant]
     Indication: HYPERLIPIDAEMIA
     Dosage: 20 MG
     Route: 048
     Dates: start: 20111101
  2. GLUCOPHAGE [Concomitant]
     Indication: TYPE 2 DIABETES MELLITUS
     Dosage: 850 MG
     Route: 048
  3. PRADAXA [Suspect]
     Indication: ATRIAL FIBRILLATION
     Dosage: 300 MG
     Route: 048
     Dates: start: 20101101, end: 20111112
  4. AKTIFFERIN [Concomitant]
     Indication: ANAEMIA
     Dosage: 1 CAP/DAY
     Route: 048
  5. NORMITEN [Concomitant]
     Indication: HYPERTENSION
     Dosage: 100 MG
  6. LORIVAN [Concomitant]
     Indication: INSOMNIA
     Dosage: 2 MG
     Route: 048
  7. PRADAXA [Suspect]
     Dosage: 150 MG
     Route: 048
  8. EXFORGE [Concomitant]
     Indication: HYPERTENSION
     Dosage: 80/5
     Route: 048
     Dates: start: 20111101

REACTIONS (1)
  - ISCHAEMIC STROKE [None]
